FAERS Safety Report 20506903 (Version 1)
Quarter: 2022Q1

REPORT INFORMATION
  Report Type: Spontaneous
  Country: GB (occurrence: GB)
  Receive Date: 20220223
  Receipt Date: 20220223
  Transmission Date: 20220423
  Serious: Yes (Hospitalization)
  Sender: FDA-Public Use
  Company Number: None

PATIENT
  Age: 62 Year
  Sex: Female

DRUGS (6)
  1. OMEPRAZOLE [Suspect]
     Active Substance: OMEPRAZOLE
     Dosage: OMEPRAZOLE 20MG GASTRO-RESISTANT CAPSULES ONE TO BE TAKEN EACH DAY
  2. ALENDRONIC ACID [Concomitant]
     Active Substance: ALENDRONIC ACID
     Dosage: ALENDRONIC ACID 70MG TABLETS ONE TO BE TAKEN ON THE SAME DAY EACH WEEK - TUESDAYS
  3. CODEINE [Concomitant]
     Active Substance: CODEINE
     Dosage: CODEINE 15MG TABLETS 1 OR 2 QDS PRN
  4. DULOXETINE [Concomitant]
     Active Substance: DULOXETINE
     Dosage: DULOXETINE 60MG GASTRO-RESISTANT CAPSULES ONE TO BE TAKEN EACH DAY
  5. ACETAMINOPHEN [Concomitant]
     Active Substance: ACETAMINOPHEN
     Dosage: PARACETAMOL 500MG TABLETS 1-2 QDS PRN
  6. Evacal [Concomitant]
     Dosage: 1500MG/400UNIT CHEWABLE TABLETS ONE TWICE A DAY

REACTIONS (1)
  - Hyponatraemia [Unknown]
